FAERS Safety Report 7912236-3 (Version None)
Quarter: 2011Q4

REPORT INFORMATION
  Report Type: 
  Country: None (occurrence: None)
  Receive Date: 20111114
  Receipt Date: 20111110
  Transmission Date: 20120403
  Serious: Yes (Other)
  Sender: FDA-Public Use
  Company Number: US-MERCK-1111USA01252

PATIENT
  Age: 73 Year
  Sex: Male

DRUGS (12)
  1. RESTORIL [Concomitant]
     Route: 065
  2. SULFANILAMIDE [Suspect]
     Route: 065
  3. DECADRON [Suspect]
     Route: 048
  4. ACYCLOVIR [Concomitant]
     Route: 065
  5. LISINOPRIL [Concomitant]
     Route: 048
  6. AMLODIPINE [Concomitant]
     Route: 065
  7. REVLIMID [Suspect]
     Route: 048
     Dates: start: 20110829, end: 20110904
  8. COMPAZINE [Concomitant]
     Route: 065
  9. ASPIRIN [Concomitant]
     Route: 065
  10. CELEXA [Concomitant]
     Route: 065
  11. BACTRIM [Concomitant]
     Route: 065
  12. REVLIMID [Suspect]
     Indication: MULTIPLE MYELOMA
     Route: 048
     Dates: start: 20110810, end: 20110820

REACTIONS (2)
  - RASH ERYTHEMATOUS [None]
  - PULMONARY EMBOLISM [None]
